FAERS Safety Report 5232152-8 (Version None)
Quarter: 2007Q1

REPORT INFORMATION
  Report Type: 
  Country: None (occurrence: None)
  Receive Date: 20061201
  Receipt Date: 20060823
  Transmission Date: 20070707
  Serious: No
  Sender: FDA-Public Use
  Company Number: USA050393988

PATIENT
  Sex: Male

DRUGS (3)
  1. CYMBALTA [Suspect]
     Indication: NEUROPATHY
     Dosage: 60 MG, DAILY (1/D)
     Dates: start: 20050314
  2. NEURONTIN [Concomitant]
  3. PREGABALIN (PREGABALIN) [Concomitant]

REACTIONS (4)
  - EYE LASER SURGERY [None]
  - FATIGUE [None]
  - PAIN [None]
  - VISUAL ACUITY REDUCED [None]
